FAERS Safety Report 6050270-1 (Version None)
Quarter: 2009Q1

REPORT INFORMATION
  Report Type: 
  Country: None (occurrence: None)
  Receive Date: 20090126
  Receipt Date: 20090114
  Transmission Date: 20090719
  Serious: Yes (Other)
  Sender: FDA-Public Use
  Company Number: PT-AMGEN-US329214

PATIENT
  Sex: Female
  Weight: 65 kg

DRUGS (3)
  1. ENBREL [Suspect]
     Indication: PSORIASIS
     Route: 058
     Dates: start: 20090101, end: 20090114
  2. OMEPRAZOLE [Concomitant]
     Dosage: UNKNOWN
     Route: 048
  3. ISONIAZID [Concomitant]
     Dosage: UNKNOWN
     Route: 048

REACTIONS (6)
  - DYSPNOEA [None]
  - HYPERSENSITIVITY [None]
  - MALAISE [None]
  - PHARYNGEAL OEDEMA [None]
  - TONGUE DISCOLOURATION [None]
  - TONGUE OEDEMA [None]
